FAERS Safety Report 4677213-7 (Version None)
Quarter: 2005Q2

REPORT INFORMATION
  Report Type: 
  Country: None (occurrence: None)
  Receive Date: 20050526
  Receipt Date: 20050526
  Transmission Date: 20051028
  Serious: Yes (Hospitalization)
  Sender: FDA-Public Use
  Company Number: None

PATIENT
  Sex: Female

DRUGS (2)
  1. DEXEDRINE [Suspect]
     Indication: HEAD INJURY
     Dosage: 5 MG ONE BID
     Dates: start: 20050515
  2. DEXEDRINE [Suspect]
     Indication: NARCOLEPSY
     Dosage: 5 MG ONE BID
     Dates: start: 20050515

REACTIONS (1)
  - PALPITATIONS [None]
